FAERS Safety Report 9185536 (Version 1)
Quarter: 2012Q4

REPORT INFORMATION
  Report Type: 
  Country: US (occurrence: US)
  Receive Date: 20121101
  Receipt Date: 20121101
  Transmission Date: 20130627
  Serious: Yes (Other)
  Sender: FDA-Public Use
  Company Number: US-PFIZER INC-2012268867

PATIENT
  Age: 63 Year
  Sex: Female

DRUGS (5)
  1. GABAPENTIN [Suspect]
     Indication: PRODUCT USED FOR UNKNOWN INDICATION
     Dosage: UNK
  2. GEODON [Suspect]
     Indication: PRODUCT USED FOR UNKNOWN INDICATION
     Dosage: UNK
  3. CYMBALTA [Suspect]
     Indication: PRODUCT USED FOR UNKNOWN INDICATION
     Dosage: UNK
  4. XENAZINE [Suspect]
     Indication: OROFACIAL DYSKINESIA
     Dosage: UNK
     Route: 048
     Dates: end: 201208
  5. XENAZINE [Suspect]
     Dosage: 12.5 mg, 2x/day
     Route: 048
     Dates: start: 20120929

REACTIONS (2)
  - Suicidal ideation [Unknown]
  - Tinnitus [Unknown]
